FAERS Safety Report 9700817 (Version 2)
Quarter: 2014Q1

REPORT INFORMATION
  Report Type: Spontaneous
  Country: GB (occurrence: None)
  Receive Date: 20131119
  Receipt Date: 20140210
  Transmission Date: 20141002
  Serious: Yes (Disabling)
  Sender: FDA-Public Use
  Company Number: 2013AP009543

PATIENT
  Age: 67 Year
  Sex: Female

DRUGS (2)
  1. ALENDRONATE (ALENDRONATE SODIUM) [Suspect]
     Indication: OSTEOPOROSIS
     Dosage: UNKNOWN; PO; UNKNOWN
     Route: 048
     Dates: start: 20101001, end: 20130601
  2. CALCIUM + VITAMIN D [Concomitant]

REACTIONS (2)
  - Vulval ulceration [None]
  - Vulvitis [None]
